FAERS Safety Report 9410026 (Version 1)
Quarter: 2013Q2

REPORT INFORMATION
  Report Type: Spontaneous
  Country: US (occurrence: None)
  Receive Date: 20130607
  Receipt Date: 20130607
  Transmission Date: 20140414
  Serious: Yes (Hospitalization, Other)
  Sender: FDA-Public Use
  Company Number: AUR-APL-2013-04208

PATIENT
  Age: 68 Year
  Sex: Male
  Weight: 95 kg

DRUGS (10)
  1. VALSARTAN+HYDROCHLOROTHIAZIDE [Suspect]
  2. CALCIUM CARBONATE [Suspect]
     Dosage: 15-20 TABLETS DAILY FOR PREVIOUS 4-5 DAYS
     Route: 048
  3. VITAMIN D (ERGOCALCIFEROL) [Suspect]
  4. AMLODIPINE (AMLODIPINE) [Concomitant]
  5. ASPIRIN (ACETYLSALICYLIC ACID) [Concomitant]
  6. CEFDINIR (CEFDINIR) [Concomitant]
  7. COLESEVELAM (COLESEVELAM) [Concomitant]
  8. EZETIMIBE (EZETIMIBE) (TABLET) [Concomitant]
  9. LANOXIN (DIGOXIN) [Concomitant]
  10. VARDENAFIL (VARDENAFIL) [Concomitant]

REACTIONS (11)
  - Hypercalcaemia [None]
  - Constipation [None]
  - Respiratory failure [None]
  - Nausea [None]
  - Vomiting [None]
  - Confusional state [None]
  - Acute respiratory distress syndrome [None]
  - Pancreatitis necrotising [None]
  - Continuous haemodiafiltration [None]
  - Abdominal compartment syndrome [None]
  - Abdominal compartment syndrome [None]
